FAERS Safety Report 7600523-8 (Version None)
Quarter: 2011Q2

REPORT INFORMATION
  Report Type: 
  Country: None (occurrence: None)
  Receive Date: 20110629
  Receipt Date: 20110614
  Transmission Date: 20111010
  Serious: Yes (Other)
  Sender: FDA-Public Use
  Company Number: AUR-APL-2010-03200

PATIENT
  Age: 56 Year
  Sex: Female

DRUGS (6)
  1. ROSUVASTATIN [Concomitant]
  2. METFORMIN HCL [Concomitant]
  3. PRAVASTATIN [Concomitant]
  4. FENOFIBRATE [Concomitant]
  5. ATORVASTATIN [Suspect]
     Indication: PRODUCT USED FOR UNKNOWN INDICATION
     Dosage: 10 MG
     Dates: start: 20050528
  6. SIMVASTATIN [Suspect]
     Indication: PRODUCT USED FOR UNKNOWN INDICATION
     Dosage: 40 MG
     Dates: start: 20050505

REACTIONS (3)
  - APOLIPOPROTEIN A-I DECREASED [None]
  - MYALGIA [None]
  - HIGH DENSITY LIPOPROTEIN DECREASED [None]
